FAERS Safety Report 18545413 (Version 2)
Quarter: 2020Q4

REPORT INFORMATION
  Report Type: Spontaneous
  Country: CA (occurrence: CA)
  Receive Date: 20201125
  Receipt Date: 20201222
  Transmission Date: 20210114
  Serious: Yes (Other)
  Sender: FDA-Public Use
  Company Number: NVSC2020CA309899

PATIENT
  Age: 38 Year
  Sex: Male

DRUGS (1)
  1. COSENTYX [Suspect]
     Active Substance: SECUKINUMAB
     Indication: PSORIATIC ARTHROPATHY
     Dosage: UNK (EITHER 300MG OR 150MG)
     Route: 065
     Dates: start: 202002, end: 202008

REACTIONS (4)
  - Diarrhoea [Unknown]
  - Colitis [Unknown]
  - Inflammatory bowel disease [Unknown]
  - Clostridium difficile infection [Unknown]
